FAERS Safety Report 9357769 (Version 1)
Quarter: 2013Q2

REPORT INFORMATION
  Report Type: Spontaneous
  Country: US (occurrence: US)
  Receive Date: 20130620
  Receipt Date: 20130620
  Transmission Date: 20140414
  Serious: Yes (Other)
  Sender: FDA-Public Use
  Company Number: US-PFIZER INC-2013179371

PATIENT
  Age: 53 Year
  Sex: Female

DRUGS (7)
  1. SOMAVERT [Suspect]
     Indication: ACROMEGALY
     Dosage: 30 MG (2 DF OF 15MG), 1X/DAY
     Route: 058
  2. SEA OMEGA [Concomitant]
     Dosage: UNK
  3. ADVIL [Concomitant]
     Dosage: 100 MG, UNK
  4. LORTAB [Concomitant]
     Dosage: 7.5/ 500, UNK
  5. MUCINEX ER [Concomitant]
     Dosage: 600 MG, UNK
  6. VITAMIN B COMPLEX [Concomitant]
     Dosage: UNK, 100
  7. VITAMIN D3 [Concomitant]
     Dosage: 2000 IU, UNK

REACTIONS (7)
  - Back disorder [Unknown]
  - Headache [Unknown]
  - Diarrhoea [Unknown]
  - Muscle spasms [Unknown]
  - Insomnia [Unknown]
  - Injection site bruising [Unknown]
  - Injection site pain [Unknown]
